FAERS Safety Report 7435929-3 (Version None)
Quarter: 2011Q2

REPORT INFORMATION
  Report Type: 
  Country: None (occurrence: None)
  Receive Date: 20110425
  Receipt Date: 20110419
  Transmission Date: 20111010
  Serious: Yes (Other)
  Sender: FDA-Public Use
  Company Number: US-PFIZER INC-2011086249

PATIENT
  Sex: Female
  Weight: 79 kg

DRUGS (8)
  1. KLONOPIN [Concomitant]
     Indication: BIPOLAR DISORDER
     Dosage: 1 MG, 4X/DAY
     Route: 048
  2. GEODON [Suspect]
     Indication: BIPOLAR DISORDER
     Dosage: UNK
     Route: 048
     Dates: start: 20110101
  3. GEODON [Suspect]
     Indication: BORDERLINE PERSONALITY DISORDER
  4. TOPAMAX [Concomitant]
     Indication: BIPOLAR DISORDER
     Dosage: 400 MG, DAILY
     Route: 048
  5. AMBIEN [Concomitant]
     Indication: BORDERLINE PERSONALITY DISORDER
  6. AMBIEN [Concomitant]
     Indication: BIPOLAR DISORDER
     Dosage: 20 MG, DAILY AT BEDTIME
     Route: 048
  7. KLONOPIN [Concomitant]
     Indication: BORDERLINE PERSONALITY DISORDER
  8. TOPAMAX [Concomitant]
     Indication: BORDERLINE PERSONALITY DISORDER

REACTIONS (4)
  - DEPRESSION [None]
  - PHARYNGEAL OEDEMA [None]
  - MALAISE [None]
  - LARYNGITIS [None]
